FAERS Safety Report 8057959-3 (Version None)
Quarter: 2012Q1

REPORT INFORMATION
  Report Type: 
  Country: None (occurrence: None)
  Receive Date: 20120120
  Receipt Date: 20120116
  Transmission Date: 20120608
  Serious: No
  Sender: FDA-Public Use
  Company Number: US-PFIZER INC-2012012405

PATIENT
  Sex: Female
  Weight: 82.54 kg

DRUGS (11)
  1. CARDIZEM SR [Concomitant]
     Indication: HYPERTENSION
     Dosage: 150 MG, 2X/DAY
  2. DIGOXIN [Concomitant]
     Indication: ATRIAL FIBRILLATION
     Dosage: 0.25 MG, 1X/DAY
  3. CLARITIN [Concomitant]
     Indication: HYPERSENSITIVITY
     Dosage: UNK, AS NEEDED
  4. EFFEXOR XR [Suspect]
     Indication: DEPRESSION
     Dosage: 150 MG, 1X/DAY
     Route: 048
     Dates: end: 20111201
  5. ZOLPIDEM [Concomitant]
     Indication: SLEEP DISORDER
     Dosage: UNK, 1X/DAY
  6. METFORMIN [Concomitant]
     Indication: GLUCOSE TOLERANCE IMPAIRED
     Dosage: 500 MG, 1X/DAY
  7. XANAX [Concomitant]
     Indication: PANIC ATTACK
     Dosage: 0.25 MG, 1X/DAY
  8. BUPROPION [Concomitant]
     Indication: DEPRESSION
     Dosage: 100 MG, 2X/DAY
  9. PRAVACHOL [Concomitant]
     Indication: BLOOD CHOLESTEROL INCREASED
     Dosage: UNK
  10. ASPIRIN [Concomitant]
     Dosage: 81 MG, 1X/DAY
  11. PRISTIQ [Concomitant]
     Indication: DEPRESSION
     Dosage: UNK

REACTIONS (1)
  - DRUG EFFECT DECREASED [None]
